FAERS Safety Report 5741514-1 (Version None)
Quarter: 2008Q2

REPORT INFORMATION
  Report Type: 
  Country: None (occurrence: None)
  Receive Date: 20080519
  Receipt Date: 20080314
  Transmission Date: 20081010
  Serious: No
  Sender: FDA-Public Use
  Company Number: US-BAYER-200817441NA

PATIENT
  Age: 29 Year
  Sex: Female
  Weight: 57 kg

DRUGS (2)
  1. ULTRAVIST 370 [Suspect]
     Indication: COMPUTERISED TOMOGRAM
     Route: 042
     Dates: start: 20080313, end: 20080313
  2. CLONOPIN [Concomitant]

REACTIONS (3)
  - EAR PRURITUS [None]
  - ERYTHEMA [None]
  - URTICARIA [None]
